FAERS Safety Report 8517678-3 (Version None)
Quarter: 2012Q3

REPORT INFORMATION
  Report Type: 
  Country: None (occurrence: None)
  Receive Date: 20120718
  Receipt Date: 20120709
  Transmission Date: 20120928
  Serious: Yes (Death, Life-Threatening, Hospitalization)
  Sender: FDA-Public Use
  Company Number: DE-CELGENEUS-062-21880-12032827

PATIENT
  Age: 61 Year
  Sex: Male
  Weight: 111.2 kg

DRUGS (23)
  1. TORSEMIDE [Concomitant]
     Dosage: 20 MILLIGRAM
     Route: 048
  2. CANDESARTAN CILEXETIL [Concomitant]
     Dosage: 16 MILLIGRAM
     Route: 048
  3. HYDROCHLOROTHIAZIDE [Concomitant]
     Dosage: 25 MILLIGRAM
     Route: 048
  4. METFORMIN HYDROCHLORIDE [Concomitant]
     Dosage: 2 GRAM
     Route: 048
  5. METOPROLOL SUCCINATE [Concomitant]
     Dosage: 142.5 MILLIGRAM
     Route: 048
  6. FLUTICASONE PROPIONATE/SALMETEROL [Concomitant]
     Dosage: 500 MICROGRAM
     Route: 048
  7. RITUXIMAB [Suspect]
     Indication: CHRONIC LYMPHOCYTIC LEUKAEMIA
     Dosage: 953.9 MILLIGRAM
     Route: 041
     Dates: start: 20120314, end: 20120314
  8. DIGITOXIN TAB [Concomitant]
     Route: 048
     Dates: start: 20120412
  9. AMLODIPINE [Concomitant]
     Dosage: 5 MILLIGRAM
     Route: 048
  10. TAMSULOSIN HCL [Concomitant]
     Dosage: .4 MILLIGRAM
     Route: 048
  11. INDAPAMID [Concomitant]
     Dosage: 1.5 MILLIGRAM
     Route: 048
  12. ACETYLSALICYLIC ACID SRT [Concomitant]
     Dosage: 100 MILLIGRAM
     Route: 048
  13. RIFABUTIN [Concomitant]
     Dosage: 150 MILLIGRAM
     Route: 065
  14. ETHAMBUTOL HYDROCHLORIDE [Concomitant]
     Dosage: 2 GRAM
     Route: 048
     Dates: start: 20120412
  15. AMPHOTERICIN B [Concomitant]
     Route: 065
  16. PANTOPRAZOLE [Concomitant]
     Dosage: 80 MILLIGRAM
     Route: 048
  17. CLARITHROMYCIN [Concomitant]
     Dosage: 1 GRAM
     Route: 048
     Dates: start: 20120412
  18. REVLIMID [Suspect]
     Indication: CHRONIC LYMPHOCYTIC LEUKAEMIA
     Dosage: 25 MILLIGRAM
     Route: 048
     Dates: start: 20120315, end: 20120411
  19. GABAPENTIN [Concomitant]
     Dosage: 680 MILLIGRAM
     Route: 048
  20. BENDAMUSTINE HYDROCHLORIDE [Suspect]
     Indication: CHRONIC LYMPHOCYTIC LEUKAEMIA
     Dosage: 127 MILLIGRAM
     Route: 041
     Dates: start: 20120315, end: 20120315
  21. TIOTROPIUM [Concomitant]
     Dosage: 36 MICROGRAM
     Route: 048
  22. TILIDIN PLUS [Concomitant]
     Dosage: 100MG/8MG
     Route: 048
  23. RIFABUTIN [Concomitant]
     Route: 048
     Dates: start: 20120412

REACTIONS (4)
  - SEPTIC SHOCK [None]
  - PNEUMONIA PRIMARY ATYPICAL [None]
  - FEBRILE NEUTROPENIA [None]
  - RESPIRATORY SYNCYTIAL VIRUS INFECTION [None]
